FAERS Safety Report 9093292 (Version 1)
Quarter: 2013Q1

REPORT INFORMATION
  Report Type: Spontaneous
  Country: US (occurrence: US)
  Receive Date: 20130131
  Receipt Date: 20130131
  Transmission Date: 20140127
  Serious: No
  Sender: FDA-Public Use
  Company Number: US-ABBOTT-12P-163-1002930-00

PATIENT
  Sex: Male
  Weight: 94.43 kg

DRUGS (4)
  1. HUMIRA [Suspect]
     Indication: CROHN^S DISEASE
     Route: 058
  2. AZATHIOPRINE [Concomitant]
     Indication: PRODUCT USED FOR UNKNOWN INDICATION
  3. MVI [Concomitant]
     Indication: PRODUCT USED FOR UNKNOWN INDICATION
  4. B COMPLEX [Concomitant]
     Indication: PRODUCT USED FOR UNKNOWN INDICATION

REACTIONS (2)
  - Hyperhidrosis [Not Recovered/Not Resolved]
  - Injection site pain [Not Recovered/Not Resolved]
